FAERS Safety Report 7328580-7 (Version None)
Quarter: 2011Q1

REPORT INFORMATION
  Report Type: 
  Country: None (occurrence: None)
  Receive Date: 20110225
  Receipt Date: 20110225
  Transmission Date: 20110831
  Serious: Yes (Hospitalization)
  Sender: FDA-Public Use
  Company Number: None

PATIENT
  Age: 65 Year
  Sex: Male
  Weight: 99.3377 kg

DRUGS (8)
  1. ACTOPLUS MET [Suspect]
     Indication: TYPE 2 DIABETES MELLITUS
     Dosage: 1 TABLET TID PO
     Route: 048
  2. CARVEDILOL [Concomitant]
  3. ISOSORBIDE MONOHYDRATE [Concomitant]
  4. TORSEMIDE [Concomitant]
  5. ASPIRIN [Concomitant]
  6. KLOR-CON [Concomitant]
  7. SIMVASTATIN [Concomitant]
  8. LISINOPRIL [Concomitant]

REACTIONS (4)
  - FLUID OVERLOAD [None]
  - HYPERHIDROSIS [None]
  - CARDIAC FAILURE CONGESTIVE [None]
  - CONDITION AGGRAVATED [None]
